FAERS Safety Report 4974624-7 (Version None)
Quarter: 2006Q2

REPORT INFORMATION
  Report Type: 
  Country: None (occurrence: None)
  Receive Date: 20060410
  Receipt Date: 20060322
  Transmission Date: 20061013
  Serious: Yes (Hospitalization)
  Sender: FDA-Public Use
  Company Number: JP200603002735

PATIENT
  Age: 54 Year
  Sex: Male

DRUGS (4)
  1. HUMALOG MIX 50/50 [Suspect]
     Indication: DIABETES MELLITUS NON-INSULIN-DEPENDENT
     Dosage: 2/D
     Dates: start: 20060227, end: 20060310
  2. CONIEL (BENIDIPINE HYDROCHLORIDE) [Concomitant]
  3. NORVASC /DEN/ (AMLODIPINE BESILATE) [Concomitant]
  4. LASIX /SCH/ (FUROSEMIDE SODIUM) [Concomitant]

REACTIONS (3)
  - DISEASE PROGRESSION [None]
  - RETINOPATHY PROLIFERATIVE [None]
  - VITREOUS HAEMORRHAGE [None]
